FAERS Safety Report 25118440 (Version 1)
Quarter: 2025Q1

REPORT INFORMATION
  Report Type: Spontaneous
  Country: NL (occurrence: NL)
  Receive Date: 20250325
  Receipt Date: 20250325
  Transmission Date: 20250408
  Serious: Yes (Hospitalization)
  Sender: PURACAP PHARMACEUTICAL LLC
  Company Number: NL-PURACAP-NL-2025EPCLIT00298

PATIENT

DRUGS (2)
  1. ALLOPURINOL [Suspect]
     Active Substance: ALLOPURINOL
     Indication: Dermatitis atopic
     Route: 065
  2. METHOTREXATE [Suspect]
     Active Substance: METHOTREXATE
     Indication: Dermatitis atopic
     Route: 048

REACTIONS (3)
  - Drug hypersensitivity [Unknown]
  - Drug interaction [Unknown]
  - Product use in unapproved indication [Unknown]
